FAERS Safety Report 6420066-7 (Version None)
Quarter: 2009Q4

REPORT INFORMATION
  Report Type: 
  Country: None (occurrence: None)
  Receive Date: 20091029
  Receipt Date: 20091022
  Transmission Date: 20100525
  Serious: Yes (Life-Threatening, Hospitalization, Other)
  Sender: FDA-Public Use
  Company Number: FR-PFIZER INC-2009282326

PATIENT
  Age: 58 Year

DRUGS (6)
  1. IRINOTECAN HCL [Suspect]
     Indication: METASTASES TO PERITONEUM
     Dosage: 231 MG DAILY
     Route: 033
     Dates: start: 20090818
  2. MITOMYCIN [Suspect]
     Indication: METASTASES TO PERITONEUM
     Dosage: 35 MG DAILY
     Route: 033
     Dates: start: 20090818
  3. LOVENOX [Concomitant]
     Dosage: 40 MG DAILY
     Route: 058
     Dates: start: 20090818
  4. INIPOMP [Concomitant]
     Dosage: 40 MG DAILY
     Route: 042
     Dates: start: 20090818
  5. ERYTHROMYCIN [Concomitant]
     Dosage: 3 G DAILY
     Route: 042
     Dates: start: 20090819
  6. PARACETAMOL [Concomitant]
     Dosage: 1 G, EVERY 6 HOURS, TDD: 4 G
     Route: 042
     Dates: start: 20090818

REACTIONS (2)
  - ABSCESS [None]
  - SEPTIC SHOCK [None]
